FAERS Safety Report 20509402 (Version 1)
Quarter: 2022Q1

REPORT INFORMATION
  Report Type: Spontaneous
  Country: FR (occurrence: FR)
  Receive Date: 20220223
  Receipt Date: 20220223
  Transmission Date: 20220424
  Serious: Yes (Hospitalization, Other)
  Sender: FDA-Public Use
  Company Number: FR-AFSSAPS-AM20220147

PATIENT
  Age: 67 Year
  Sex: Male
  Weight: 95 kg

DRUGS (12)
  1. LIDOCAINE [Suspect]
     Active Substance: LIDOCAINE
     Indication: Angiocardiogram
     Dosage: 1 MILLILITER,SINGLE (1 TOTAL)
     Route: 058
     Dates: start: 20211213, end: 20211213
  2. COMIRNATY [Suspect]
     Active Substance: TOZINAMERAN
     Indication: COVID-19 immunisation
     Dosage: 1 DOSAGE FORM, SINGLE (TOTAL)
     Route: 030
     Dates: start: 20211210, end: 20211210
  3. HEPARIN [Suspect]
     Active Substance: HEPARIN SODIUM
     Indication: Angiocardiogram
     Dosage: 3000 INTERNATIONAL UNIT
     Route: 040
     Dates: start: 20211213, end: 20211213
  4. IOMERON [Suspect]
     Active Substance: IOMEPROL
     Indication: Angiocardiogram
     Dosage: 120 MILLILITER (SINGLE (1 TOTAL, 350 MG IODE/ML))
     Route: 042
     Dates: start: 20211213, end: 20211213
  5. VERAPAMIL HYDROCHLORIDE [Suspect]
     Active Substance: VERAPAMIL HYDROCHLORIDE
     Indication: Angiocardiogram
     Dosage: 2.5 MILLIGRAM (SINGLE (1 TOTAL))
     Route: 042
     Dates: start: 20211213, end: 20211213
  6. AMIODARONE [Concomitant]
     Active Substance: AMIODARONE
     Indication: Product used for unknown indication
     Dosage: UNK
     Route: 065
  7. ATORVASTATIN [Concomitant]
     Active Substance: ATORVASTATIN
     Indication: Product used for unknown indication
     Dosage: UNK
     Route: 065
  8. BISOPROLOL [Concomitant]
     Active Substance: BISOPROLOL
     Indication: Product used for unknown indication
     Dosage: UNK
     Route: 065
  9. POTASSIUM CHLORIDE [Concomitant]
     Active Substance: POTASSIUM CHLORIDE
     Indication: Product used for unknown indication
     Dosage: UNK
     Route: 065
  10. ELIQUIS [Concomitant]
     Active Substance: APIXABAN
     Indication: Atrial fibrillation
     Dosage: 5 MILLIGRAM, TWO TIMES A DAY
     Route: 048
     Dates: start: 202109
  11. ENALAPRIL MALEATE;LERCANIDIPINE HYDROCHLORIDE [Concomitant]
     Indication: Product used for unknown indication
     Dosage: UNK, (20MG/ 20 MG)
     Route: 065
  12. FUROSEMIDE [Concomitant]
     Active Substance: FUROSEMIDE
     Indication: Product used for unknown indication
     Dosage: UNK
     Route: 065

REACTIONS (1)
  - Ischaemic stroke [Not Recovered/Not Resolved]

NARRATIVE: CASE EVENT DATE: 20211215
